FAERS Safety Report 15699371 (Version 2)
Quarter: 2019Q1

REPORT INFORMATION
  Report Type: Spontaneous
  Country: BE (occurrence: BE)
  Receive Date: 20181207
  Receipt Date: 20190107
  Transmission Date: 20190417
  Serious: Yes (Life-Threatening, Hospitalization)
  Sender: FDA-Public Use
  Company Number: BE-TEVA-2018-BE-982795

PATIENT
  Age: 46 Year
  Sex: Female

DRUGS (2)
  1. DOXORUBICIN [Interacting]
     Active Substance: DOXORUBICIN
     Indication: PERITONEAL MESOTHELIOMA MALIGNANT
     Route: 033
  2. CISPLATIN. [Suspect]
     Active Substance: CISPLATIN
     Indication: PERITONEAL MESOTHELIOMA MALIGNANT
     Route: 033

REACTIONS (4)
  - Respiratory acidosis [Recovering/Resolving]
  - Acute respiratory distress syndrome [Recovering/Resolving]
  - Drug interaction [Recovering/Resolving]
  - Hypoxia [Recovering/Resolving]
